FAERS Safety Report 8975707 (Version 3)
Quarter: 2013Q2

REPORT INFORMATION
  Report Type: Report from Study
  Country: BR (occurrence: BR)
  Receive Date: 20121219
  Receipt Date: 20130531
  Transmission Date: 20140414
  Serious: Yes (Other)
  Sender: FDA-Public Use
  Company Number: PHHY2012BR115936

PATIENT
  Age: 65 Year
  Sex: Female
  Weight: 70 kg

DRUGS (14)
  1. DIOVAN HCT [Suspect]
     Indication: HYPERTENSION
     Dosage: 1 DF (320/12.5 MG) DAILY
     Route: 048
     Dates: start: 201212
  2. DIOVAN HCT [Suspect]
     Dosage: 0.5 DF (320/12.5 MG) Q12H
     Route: 048
  3. PRESSAT [Suspect]
     Indication: HYPERTENSION
  4. ALDOMET [Concomitant]
     Indication: BLOOD PRESSURE ABNORMAL
     Dosage: 4 DF(250MG), DAILY
     Route: 048
     Dates: start: 201301
  5. PROPRANOLOL [Concomitant]
     Indication: BLOOD PRESSURE ABNORMAL
     Dosage: 3 DF(80MG), DAILY
     Route: 048
  6. PROPRANOLOL [Concomitant]
     Indication: MITRAL VALVE PROLAPSE
  7. COMIGLISEXR [Concomitant]
     Indication: DIABETES MELLITUS
     Dosage: 1 DF(5/1000MG), DAILY
     Route: 048
  8. EUTIROX [Concomitant]
     Indication: HYPOTHYROIDISM
     Dosage: 1 DF(50MG), DAILY
     Route: 048
  9. SIMVASTATIN [Concomitant]
     Indication: BLOOD CHOLESTEROL
     Dosage: 1 DF(20MG), DAILY
     Route: 048
  10. PANTOPRAZOLE [Concomitant]
     Indication: ABDOMINAL DISCOMFORT
     Dosage: 1 DF(40MG), DAILY
     Route: 048
  11. VALIUM [Concomitant]
     Indication: PANIC DISORDER
     Dosage: 3 DF(10MG), DAILY
     Route: 048
  12. VALIUM [Concomitant]
     Indication: DEPRESSION
  13. DEPURA [Concomitant]
     Dosage: 15 DF, DAILY
     Route: 048
  14. NEOSALDINA [Concomitant]
     Indication: HEADACHE
     Dosage: 2 DF, DAILY
     Route: 048

REACTIONS (26)
  - Myocardial fibrosis [Not Recovered/Not Resolved]
  - Angina pectoris [Not Recovered/Not Resolved]
  - Intestinal polyp [Unknown]
  - Gastrointestinal pain [Recovering/Resolving]
  - Heart valve stenosis [Not Recovered/Not Resolved]
  - Capillary disorder [Recovered/Resolved]
  - Pigmentation disorder [Recovered/Resolved]
  - Ocular hyperaemia [Recovered/Resolved]
  - Eye disorder [Recovered/Resolved]
  - Drug hypersensitivity [Recovering/Resolving]
  - Faeces discoloured [Recovering/Resolving]
  - Gastrointestinal disorder [Unknown]
  - Panic disorder [Not Recovered/Not Resolved]
  - Fear [Unknown]
  - Tremor [Not Recovered/Not Resolved]
  - Feeling abnormal [Unknown]
  - Hypertension [Recovered/Resolved]
  - Headache [Recovered/Resolved]
  - Local swelling [Recovered/Resolved]
  - Dizziness [Not Recovered/Not Resolved]
  - Hyperhidrosis [Not Recovered/Not Resolved]
  - Rash macular [Not Recovered/Not Resolved]
  - Dilatation atrial [Unknown]
  - Heart rate increased [Recovered/Resolved]
  - Pain in extremity [Not Recovered/Not Resolved]
  - Wrong technique in drug usage process [Unknown]
